FAERS Safety Report 8176109-6 (Version None)
Quarter: 2012Q1

REPORT INFORMATION
  Report Type: 
  Country: None (occurrence: None)
  Receive Date: 20120301
  Receipt Date: 20120220
  Transmission Date: 20120608
  Serious: Yes (Death, Other)
  Sender: FDA-Public Use
  Company Number: JP-BRISTOL-MYERS SQUIBB COMPANY-16407371

PATIENT
  Age: 9 Year
  Sex: Male

DRUGS (2)
  1. ETOPOSIDE [Suspect]
     Indication: GERM CELL CANCER
     Dates: start: 19950101
  2. CISPLATIN [Suspect]
     Indication: GERM CELL CANCER
     Dates: start: 19950101

REACTIONS (2)
  - BONE MARROW FAILURE [None]
  - GLIOBLASTOMA [None]
